FAERS Safety Report 7103209-1 (Version None)
Quarter: 2010Q4

REPORT INFORMATION
  Report Type: 
  Country: None (occurrence: None)
  Receive Date: 20101115
  Receipt Date: 20090312
  Transmission Date: 20110411
  Serious: No
  Sender: FDA-Public Use
  Company Number: US-KINGPHARMUSA00001-K200900287

PATIENT
  Age: 58 Year
  Sex: Female

DRUGS (20)
  1. AVINZA [Suspect]
     Indication: BACK PAIN
     Dosage: 120 MG, QD
     Route: 048
     Dates: start: 20060101
  2. LIDODERM [Concomitant]
     Indication: BACK PAIN
     Dosage: UNK PATCH, QD
     Route: 061
  3. PREMARIN [Concomitant]
     Indication: MENOPAUSE
     Dosage: UNK
     Route: 048
  4. PREMPRO [Concomitant]
     Indication: MENOPAUSE
     Dosage: UNK
     Route: 048
  5. KLONOPIN [Concomitant]
     Indication: ANXIETY
     Dosage: UNK
     Route: 048
  6. KLONOPIN [Concomitant]
     Indication: SLEEP DISORDER
  7. THYROID PREPARATIONS [Concomitant]
     Indication: GOITRE
     Dosage: UNK
     Route: 048
  8. CELEXA [Concomitant]
     Indication: DEPRESSION
     Dosage: UNK
     Route: 048
  9. SUDAFED                            /00070002/ [Concomitant]
     Indication: SEASONAL ALLERGY
     Dosage: UNK
     Route: 048
  10. BENADRYL [Concomitant]
     Indication: HYPERSENSITIVITY
     Dosage: UNK
     Route: 048
  11. FIBERCON                           /00567702/ [Concomitant]
     Indication: BOWEL MOVEMENT IRREGULARITY
     Dosage: UNK
     Route: 048
  12. TUMS                               /00108001/ [Concomitant]
     Indication: MINERAL SUPPLEMENTATION
     Dosage: UNK
     Route: 048
  13. PEPCID [Concomitant]
     Indication: PROPHYLAXIS AGAINST GASTROINTESTINAL ULCER
     Dosage: UNK
     Route: 048
  14. HYDROCHLOROTHIAZIDE [Concomitant]
     Indication: FLUID RETENTION
     Dosage: UNK
     Route: 048
  15. SPIRONOLACTONE [Concomitant]
     Indication: FLUID RETENTION
     Dosage: UNK
     Route: 048
  16. FLOVENT [Concomitant]
     Indication: ASTHMA
     Dosage: UNK
  17. ALBUTEROL [Concomitant]
     Indication: ASTHMA
     Dosage: UNK
  18. POTASSIUM CHLORIDE [Concomitant]
     Indication: SUPPLEMENTATION THERAPY
     Dosage: UNK
     Route: 048
  19. ANTIEMETICS AND ANTINAUSEANTS [Concomitant]
     Indication: NAUSEA
  20. ANTIEMETICS AND ANTINAUSEANTS [Concomitant]
     Indication: GASTRIC DISORDER

REACTIONS (2)
  - BREAKTHROUGH PAIN [None]
  - DRUG DIVERSION [None]
